FAERS Safety Report 5601826-9 (Version None)
Quarter: 2008Q1

REPORT INFORMATION
  Report Type: 
  Country: None (occurrence: None)
  Receive Date: 20080124
  Receipt Date: 20080111
  Transmission Date: 20080703
  Serious: Yes (Other)
  Sender: FDA-Public Use
  Company Number: MX-PFIZER INC-2008005477

PATIENT
  Sex: Female
  Weight: 93 kg

DRUGS (11)
  1. VARENICLINE [Suspect]
     Indication: SMOKING CESSATION THERAPY
     Route: 048
  2. VARENICLINE [Suspect]
     Route: 048
  3. METFORMIN HCL [Concomitant]
     Dosage: TEXT:2 TABLETS AT NIGHT
     Route: 048
  4. RIMONABANT [Concomitant]
     Dosage: TEXT:1 TABLET DAILY
     Route: 048
  5. LEVOTHYROXINE SODIUM [Concomitant]
     Dosage: TEXT:1 TABLET EVERY DAY
     Route: 048
  6. CIMICIFUGA RACEMOSA [Concomitant]
     Dosage: TEXT:1 TABLET EVERY DAY
     Route: 048
  7. VALERIANA OFFICINALIS [Concomitant]
     Dosage: TEXT:1 TABLET TWICE A DAY
     Route: 048
  8. CALTRATE [Concomitant]
     Dosage: TEXT:1 1/2 CAPSULES DAILY
     Route: 048
  9. LIVIAL [Concomitant]
     Route: 048
  10. ROSUVASTATIN [Concomitant]
     Dosage: TEXT:1 TABLET EVERY DAY
     Route: 048
  11. LEXOTAN [Concomitant]
     Dosage: TEXT:1 TABLET TWICE A DAY
     Route: 048

REACTIONS (5)
  - ANXIETY [None]
  - BRADYPHRENIA [None]
  - FEELING OF DESPAIR [None]
  - TREMOR [None]
  - VOMITING [None]
